FAERS Safety Report 8835047 (Version 1)
Quarter: 2012Q4

REPORT INFORMATION
  Report Type: Spontaneous
  Country: US (occurrence: None)
  Receive Date: 20121009
  Receipt Date: 20121009
  Transmission Date: 20130627
  Serious: No
  Sender: FDA-Public Use
  Company Number: SPI201200242

PATIENT
  Age: 53 Year
  Sex: Female
  Weight: 54.4 kg

DRUGS (3)
  1. AMITIZA [Suspect]
     Indication: CHRONIC IDIOPATHIC CONSTIPATION
     Route: 048
     Dates: start: 201206, end: 201207
  2. AMITIZA [Suspect]
     Indication: CHRONIC IDIOPATHIC CONSTIPATION
     Route: 048
     Dates: start: 20120825, end: 20120915
  3. MIRALAX (MARCOGOL) [Concomitant]

REACTIONS (2)
  - Drug effect decreased [None]
  - Dyspnoea [None]
